FAERS Safety Report 6645843-9 (Version None)
Quarter: 2010Q1

REPORT INFORMATION
  Report Type: 
  Country: None (occurrence: None)
  Receive Date: 20100323
  Receipt Date: 20100317
  Transmission Date: 20100710
  Serious: Yes (Life-Threatening)
  Sender: FDA-Public Use
  Company Number: DE-ASTRAZENECA-2010SE11826

PATIENT
  Age: 17010 Day
  Sex: Female

DRUGS (4)
  1. QUETIAPINE XR [Suspect]
     Indication: DEPRESSION
     Route: 048
     Dates: start: 20100313, end: 20100314
  2. QUETIAPINE XR [Suspect]
     Route: 048
     Dates: start: 20100315, end: 20100316
  3. ZOPICLON [Concomitant]
     Route: 048
  4. TAVOR [Concomitant]
     Route: 048

REACTIONS (1)
  - LOSS OF CONSCIOUSNESS [None]
